FAERS Safety Report 9444679 (Version 1)
Quarter: 2013Q3

REPORT INFORMATION
  Report Type: Spontaneous
  Country: US (occurrence: None)
  Receive Date: 20130806
  Receipt Date: 20130806
  Transmission Date: 20140515
  Serious: Yes (Other)
  Sender: FDA-Public Use
  Company Number: None

PATIENT
  Age: 60 Year
  Sex: Female
  Weight: 110 kg

DRUGS (1)
  1. CIPROFLOXACIN 500 MG BAY [Suspect]
     Indication: SINUSITIS
     Dates: start: 20130621, end: 20130623

REACTIONS (7)
  - Arthralgia [None]
  - Arthralgia [None]
  - Arthralgia [None]
  - Asthenia [None]
  - Pain in extremity [None]
  - Musculoskeletal pain [None]
  - Gait disturbance [None]
